FAERS Safety Report 6156714-9 (Version None)
Quarter: 2009Q2

REPORT INFORMATION
  Report Type: 
  Country: None (occurrence: None)
  Receive Date: 20090416
  Receipt Date: 20090408
  Transmission Date: 20091009
  Serious: Yes (Disabling)
  Sender: FDA-Public Use
  Company Number: GB-ABBOTT-09P-167-0567417-00

PATIENT
  Sex: Male

DRUGS (1)
  1. VALPROATE SODIUM [Suspect]
     Indication: EPILEPSY
     Route: 048
     Dates: start: 19990101

REACTIONS (4)
  - EATING DISORDER [None]
  - METABOLIC DISORDER [None]
  - SKIN ODOUR ABNORMAL [None]
  - UNDERWEIGHT [None]
